FAERS Safety Report 24779523 (Version 1)
Quarter: 2024Q4

REPORT INFORMATION
  Report Type: Spontaneous
  Country: FR (occurrence: FR)
  Receive Date: 20241226
  Receipt Date: 20241226
  Transmission Date: 20250115
  Serious: Yes (Hospitalization)
  Sender: MYLAN
  Company Number: None

PATIENT
  Age: 30 Year
  Sex: Female
  Weight: 61 kg

DRUGS (5)
  1. ROPIVACAINE [Suspect]
     Active Substance: ROPIVACAINE
     Indication: Delivery
     Dosage: 124.2 MILLIGRAM,1 TOTAL
     Route: 008
     Dates: start: 20241114, end: 20241114
  2. EPINEPHRINE AND LIDOCAINE HYDROCHLORIDE [Suspect]
     Active Substance: EPINEPHRINE\LIDOCAINE HYDROCHLORIDE
     Indication: Delivery
     Dosage: 60 MILLIGRAM,1 TOTAL (SOLUTION FOR INJECTION IN VIAL)
     Route: 008
     Dates: start: 20241114, end: 20241114
  3. EPINEPHRINE AND LIDOCAINE HYDROCHLORIDE [Suspect]
     Active Substance: EPINEPHRINE\LIDOCAINE HYDROCHLORIDE
     Dosage: 120 MILLIGRAM,1 TOTAL
     Route: 008
     Dates: start: 20241114, end: 20241114
  4. XYLOCAINE [Suspect]
     Active Substance: LIDOCAINE HYDROCHLORIDE
     Indication: Delivery
     Dosage: 80 MILLIGRAM, TOTAL
     Route: 058
     Dates: start: 20241114, end: 20241114
  5. ONDANSETRON [Concomitant]
     Active Substance: ONDANSETRON
     Dosage: 4 MILLIGRAM, TOTAL
     Route: 042
     Dates: start: 20241114, end: 20241114

REACTIONS (5)
  - Horner^s syndrome [Recovered/Resolved]
  - Motor dysfunction [Recovered/Resolved]
  - Anaesthetic complication neurological [Recovered/Resolved]
  - Anaesthetic complication [Recovered/Resolved]
  - Maternal exposure during pregnancy [Unknown]

NARRATIVE: CASE EVENT DATE: 20241114
